FAERS Safety Report 15207425 (Version 1)
Quarter: 2018Q3

REPORT INFORMATION
  Report Type: Report from Study
  Country: US (occurrence: US)
  Receive Date: 20180727
  Receipt Date: 20180727
  Transmission Date: 20181010
  Serious: Yes (Other)
  Sender: FDA-Public Use
  Company Number: US-BAYER-2018-083989

PATIENT
  Age: 31 Year
  Sex: Female
  Weight: 78.91 kg

DRUGS (1)
  1. SKYLA [Suspect]
     Active Substance: LEVONORGESTREL
     Dosage: 14 MCG/24HR, CONT
     Route: 015
     Dates: start: 20180312

REACTIONS (2)
  - Device dislocation [Not Recovered/Not Resolved]
  - Uterine leiomyoma [None]

NARRATIVE: CASE EVENT DATE: 20180412
